FAERS Safety Report 16973905 (Version 7)
Quarter: 2021Q1

REPORT INFORMATION
  Report Type: Spontaneous
  Country: US (occurrence: US)
  Receive Date: 20191030
  Receipt Date: 20210129
  Transmission Date: 20210419
  Serious: Yes (Other)
  Sender: FDA-Public Use
  Company Number: US-PFIZER INC-2019194007

PATIENT
  Age: 48 Year
  Sex: Female
  Weight: 52 kg

DRUGS (1)
  1. LYRICA [Suspect]
     Active Substance: PREGABALIN
     Indication: FIBROMYALGIA
     Dosage: 200 MG, 1X/DAY (AT BEDTIME)
     Route: 048

REACTIONS (7)
  - Eye pruritus [Unknown]
  - Lymphadenopathy [Unknown]
  - Sinusitis [Unknown]
  - Fatigue [Unknown]
  - Illness [Unknown]
  - Allergy to plants [Unknown]
  - Lyme disease [Unknown]
